FAERS Safety Report 15269624 (Version 1)
Quarter: 2018Q3

REPORT INFORMATION
  Report Type: Spontaneous
  Country: US (occurrence: US)
  Receive Date: 20180726
  Receipt Date: 20180726
  Transmission Date: 20181010
  Serious: Yes (Other)
  Sender: FDA-Public Use
  Company Number: None

PATIENT
  Age: 64 Year
  Sex: Male
  Weight: 97.07 kg

DRUGS (10)
  1. CELEXA [Suspect]
     Active Substance: CITALOPRAM HYDROBROMIDE
     Indication: DEPRESSION
     Dosage: QUANTITY:1 DF DOSAGE FORM;?
     Route: 048
     Dates: start: 20180711, end: 20180711
  2. VALIUM [Concomitant]
     Active Substance: DIAZEPAM
  3. VITAMIN C [Concomitant]
     Active Substance: ASCORBIC ACID
  4. VITA B COMPLEX [Concomitant]
  5. COGENTIN [Concomitant]
     Active Substance: BENZTROPINE MESYLATE
  6. ELAVIL [Concomitant]
     Active Substance: AMITRIPTYLINE HYDROCHLORIDE
  7. VITA D3 [Concomitant]
  8. NAVANE [Concomitant]
     Active Substance: THIOTHIXENE
  9. SEROQUAL [Concomitant]
  10. RESTORIL [Concomitant]
     Active Substance: TEMAZEPAM

REACTIONS (1)
  - Neuralgia [None]

NARRATIVE: CASE EVENT DATE: 20180612
